FAERS Safety Report 6750089-X (Version None)
Quarter: 2010Q2

REPORT INFORMATION
  Report Type: 
  Country: None (occurrence: None)
  Receive Date: 20100601
  Receipt Date: 20100519
  Transmission Date: 20101027
  Serious: Yes (Other)
  Sender: FDA-Public Use
  Company Number: PHHY2010US33122

PATIENT
  Sex: Female

DRUGS (3)
  1. RECLAST [Suspect]
     Dosage: UNK
     Route: 042
     Dates: start: 20091201
  2. SYNTHROID [Concomitant]
  3. HYDROMORFON [Concomitant]

REACTIONS (6)
  - ARTHRALGIA [None]
  - BLADDER DISORDER [None]
  - GASTROINTESTINAL TRACT ADENOMA [None]
  - INFLUENZA LIKE ILLNESS [None]
  - MUSCULOSKELETAL PAIN [None]
  - SURGERY [None]
